FAERS Safety Report 7386233-3 (Version None)
Quarter: 2011Q1

REPORT INFORMATION
  Report Type: 
  Country: None (occurrence: None)
  Receive Date: 20110323
  Receipt Date: 20110309
  Transmission Date: 20110831
  Serious: Yes (Other)
  Sender: FDA-Public Use
  Company Number: 021936

PATIENT
  Age: 24 Year
  Sex: Female

DRUGS (3)
  1. LACOSAMIDE [Suspect]
     Indication: EPILEPSY
     Dosage: (), 350 MG
  2. CARBAMAZEPINE [Suspect]
     Indication: EPILEPSY
     Dosage: 900 MG (MORNING DOSE WAS REDUCED TO 100 MG (PREVIOUSLY 300 MG), REDUCED DOSE;
  3. LEVETIRACETAM [Suspect]
     Indication: EPILEPSY
     Dosage: 3000 MG;

REACTIONS (5)
  - BALANCE DISORDER [None]
  - SOMNOLENCE [None]
  - DYSARTHRIA [None]
  - NEUROTOXICITY [None]
  - DRUG INTERACTION [None]
